FAERS Safety Report 24204109 (Version 1)
Quarter: 2024Q3

REPORT INFORMATION
  Report Type: Spontaneous
  Country: ES (occurrence: ES)
  Receive Date: 20240813
  Receipt Date: 20240813
  Transmission Date: 20241016
  Serious: Yes (Other)
  Sender: Vantive US Healthcare
  Company Number: ES-VANTIVE-2024VAN018921

PATIENT
  Age: 82 Year
  Sex: Male

DRUGS (1)
  1. CALCIUM CL\DEXTROSE\MAGNESIUM CL\SODIUM BICAR\SODIUM CL\SODIUM LACT [Suspect]
     Active Substance: CALCIUM CHLORIDE\DEXTROSE MONOHYDRATE\MAGNESIUM CHLORIDE\SODIUM BICARBONATE\SODIUM CHLORIDE\SODIUM L
     Dosage: 3 BAGS OF 2.5 LITERS PER DAY
     Route: 033

REACTIONS (3)
  - Peritonitis [Not Recovered/Not Resolved]
  - Peritoneal cloudy effluent [Unknown]
  - Pain [Unknown]

NARRATIVE: CASE EVENT DATE: 20240806
